FAERS Safety Report 19887606 (Version 1)
Quarter: 2021Q3

REPORT INFORMATION
  Report Type: Spontaneous
  Country: US (occurrence: US)
  Receive Date: 20210928
  Receipt Date: 20210928
  Transmission Date: 20211014
  Serious: Yes (Other)
  Sender: FDA-Public Use
  Company Number: US-SA-2021SA316417

PATIENT
  Age: 56 Year
  Sex: Female

DRUGS (1)
  1. ZANTAC [Suspect]
     Active Substance: RANITIDINE HYDROCHLORIDE
     Indication: DYSPEPSIA
     Dosage: FREQUENCY: OTHER
     Dates: start: 200901, end: 201101

REACTIONS (3)
  - Gastrointestinal carcinoma [Unknown]
  - Colorectal cancer stage III [Unknown]
  - Small intestine carcinoma stage III [Unknown]

NARRATIVE: CASE EVENT DATE: 20120101
